FAERS Safety Report 8877318 (Version 2)
Quarter: 2013Q2

REPORT INFORMATION
  Report Type: Spontaneous
  Country: US (occurrence: None)
  Receive Date: 20120426
  Receipt Date: 20120703
  Transmission Date: 20140414
  Serious: Yes (Other)
  Sender: FDA-Public Use
  Company Number: PHEH2012US002350

PATIENT
  Age: 55 Year
  Sex: Female

DRUGS (11)
  1. GILENYA [Suspect]
     Indication: MULTIPLE SCLEROSIS
     Route: 048
     Dates: start: 20110831
  2. LIPITOR (ATORVASTATIN CALCIUM) [Concomitant]
  3. FORTEO (TERIPARATIDE) [Concomitant]
  4. EVISTA (RALOXIFENE HYDROCHLORIDE) [Concomitant]
  5. METFORMIN (METFORMIN) [Concomitant]
  6. TRIAMTERENE AND HYDROCHLOROTHIAZID (HYDROCHLOROTHIAZIDE, TRIAMTERENE) [Concomitant]
  7. OMEPRAZOLE (OMEPRAZOLE) [Concomitant]
  8. CALCIUM WITH VITAMIN D (CALCIUM PHOSPHATE, CALCIUM SODIUM LACTATE, ERGOCALCIFEROL) [Concomitant]
  9. HYDROCHLOROTHIAZIDE (HYDROCHLOROTHIAZIDE) [Concomitant]
  10. ATENOLOL (ATENOLOL) [Concomitant]
  11. FLONASE (FLUTICASONE PROPIONATE) [Concomitant]

REACTIONS (3)
  - Leukopenia [None]
  - Lymphocyte count decreased [None]
  - Thrombocytopenia [None]
